FAERS Safety Report 24728959 (Version 1)
Quarter: 2024Q4

REPORT INFORMATION
  Report Type: Report from Study
  Country: US (occurrence: US)
  Receive Date: 20241212
  Receipt Date: 20241212
  Transmission Date: 20250114
  Serious: No
  Sender: ACADIA PHARMACEUTICALS
  Company Number: US-ACADIA PHARMACEUTICALS INC.-ACA-2024-PIM-008021

PATIENT

DRUGS (1)
  1. NUPLAZID [Suspect]
     Active Substance: PIMAVANSERIN TARTRATE
     Dosage: UNKNOWN

REACTIONS (4)
  - COVID-19 [Unknown]
  - Insomnia [Unknown]
  - Headache [Unknown]
  - Confusional state [Unknown]

NARRATIVE: CASE EVENT DATE: 20240801
